FAERS Safety Report 6301682-X (Version None)
Quarter: 2009Q3

REPORT INFORMATION
  Report Type: 
  Country: None (occurrence: None)
  Receive Date: 20090807
  Receipt Date: 20090730
  Transmission Date: 20100115
  Serious: Yes (Other)
  Sender: FDA-Public Use
  Company Number: PHHY2009DE27645

PATIENT
  Sex: Male
  Weight: 75 kg

DRUGS (8)
  1. RASILEZ [Suspect]
     Indication: HYPERTENSION
     Dosage: 150 MG/DAY
     Route: 048
     Dates: start: 20080501
  2. LOCHOL [Suspect]
     Indication: HYPERCHOLESTEROLAEMIA
     Dosage: 20 MG/DAY
     Route: 048
     Dates: start: 20080101
  3. PANTOZOL [Concomitant]
     Dosage: UNK
     Dates: start: 20070101
  4. MICARDIS [Concomitant]
     Indication: HYPERTENSION
     Dosage: 80 MG/DAY
     Route: 048
     Dates: start: 20060101
  5. CARMEN [Concomitant]
     Indication: HYPERTENSION
     Dosage: 10 MG/DAY
     Route: 048
     Dates: start: 20070101
  6. PLAVIX [Concomitant]
     Indication: TRANSIENT ISCHAEMIC ATTACK
     Dosage: 75 MG/DAY
     Route: 048
     Dates: start: 20080901
  7. EZETROL [Concomitant]
     Dosage: UNK
     Dates: start: 20080101
  8. PROCORALAN [Concomitant]
     Indication: ARRHYTHMIA SUPRAVENTRICULAR
     Dosage: 5 MG/DAY
     Route: 048
     Dates: start: 20071201

REACTIONS (1)
  - LIPASE INCREASED [None]
